FAERS Safety Report 9513453 (Version 1)
Quarter: 2013Q3

REPORT INFORMATION
  Report Type: Spontaneous
  Country: US (occurrence: US)
  Receive Date: 20130910
  Receipt Date: 20130910
  Transmission Date: 20140515
  Serious: Yes (Other)
  Sender: FDA-Public Use
  Company Number: US-TARO-2013P1002024

PATIENT
  Age: 85 Year
  Sex: Female
  Weight: 126.55 kg

DRUGS (13)
  1. WARFARIN SODIUM TABLETS USP 5MG [Suspect]
     Route: 048
     Dates: start: 201204
  2. WARFARIN SODIUM TABLETS USP 5MG [Suspect]
     Route: 048
     Dates: start: 201302
  3. INSULIN [Concomitant]
  4. CARAFATE [Concomitant]
  5. ATENOLOL [Concomitant]
  6. NOVOLIN [Concomitant]
  7. CYMBALTA [Concomitant]
  8. LIPITOR [Concomitant]
  9. PREVACID [Concomitant]
  10. COMBIVENT INHALER [Concomitant]
  11. COLACE [Concomitant]
  12. POLYETHYLENE GEL [Concomitant]
  13. POTASSIUM [Concomitant]

REACTIONS (1)
  - International normalised ratio increased [Recovering/Resolving]
